FAERS Safety Report 20687752 (Version 1)
Quarter: 2022Q2

REPORT INFORMATION
  Report Type: Spontaneous
  Country: FR (occurrence: FR)
  Receive Date: 20220408
  Receipt Date: 20220408
  Transmission Date: 20220721
  Serious: Yes (Hospitalization)
  Sender: FDA-Public Use
  Company Number: None

PATIENT
  Age: 50 Year
  Sex: Female

DRUGS (5)
  1. TRAMADOL HYDROCHLORIDE [Suspect]
     Active Substance: TRAMADOL HYDROCHLORIDE
     Indication: Procedural pain
     Dosage: UNIT DOSE 150MG,FREQUENCY TIME 1 DAYS,DURATION 2 DAYS
     Route: 048
     Dates: start: 20220120, end: 20220122
  2. KETOPROFEN [Suspect]
     Active Substance: KETOPROFEN
     Indication: Procedural pain
     Dosage: UNIT DOSE 1000MG,FREQUENCY TIME  1 DAYS,DURATION 2 DAYS
     Route: 048
     Dates: start: 20220120, end: 20220122
  3. ACETAMINOPHEN [Suspect]
     Active Substance: ACETAMINOPHEN
     Indication: Procedural pain
     Dosage: UNIT DOSE 100MG,FREQUENCY TIME  1 DAYS,DURATION 2 DAYS
     Route: 048
     Dates: start: 20220120, end: 20220122
  4. LEVOTHYROXINE [Concomitant]
     Active Substance: LEVOTHYROXINE
  5. STELARA [Concomitant]
     Active Substance: USTEKINUMAB

REACTIONS (1)
  - Acute generalised exanthematous pustulosis [Recovering/Resolving]

NARRATIVE: CASE EVENT DATE: 20220123
